FAERS Safety Report 4767298-1 (Version None)
Quarter: 2005Q3

REPORT INFORMATION
  Report Type: 
  Country: None (occurrence: None)
  Receive Date: 20050913
  Receipt Date: 20050120
  Transmission Date: 20060218
  Serious: Yes (Hospitalization)
  Sender: FDA-Public Use
  Company Number: FR-GLAXOSMITHKLINE-B0365129A

PATIENT
  Age: 2 Year
  Sex: Male
  Weight: 12 kg

DRUGS (3)
  1. CLAMOXYL [Suspect]
     Indication: BRONCHITIS
     Route: 048
     Dates: start: 20050111, end: 20050119
  2. PARACETAMOL [Concomitant]
     Route: 048
     Dates: start: 20050111
  3. PIVALONE [Concomitant]
     Indication: BRONCHITIS
     Route: 045
     Dates: start: 20050111

REACTIONS (2)
  - ARTHRALGIA [None]
  - URTICARIA [None]
